FAERS Safety Report 6832137-1 (Version None)
Quarter: 2010Q3

REPORT INFORMATION
  Report Type: 
  Country: None (occurrence: None)
  Receive Date: 20100712
  Receipt Date: 20100702
  Transmission Date: 20110219
  Serious: Yes (Other)
  Sender: FDA-Public Use
  Company Number: FR-JNJFOC-20100700794

PATIENT
  Sex: Male

DRUGS (10)
  1. HALDOL [Suspect]
     Indication: AGGRESSION
     Route: 048
     Dates: start: 20100218, end: 20100306
  2. HALDOL [Suspect]
     Route: 048
     Dates: start: 20100218, end: 20100306
  3. HALDOL [Suspect]
     Route: 048
     Dates: start: 20100218, end: 20100306
  4. HALDOL [Suspect]
     Route: 048
     Dates: start: 20100218, end: 20100306
  5. HALDOL [Suspect]
     Indication: PRODUCT USED FOR UNKNOWN INDICATION
     Route: 058
  6. SERESTA [Suspect]
     Indication: SLEEP DISORDER
     Route: 048
     Dates: start: 20100218
  7. SERESTA [Suspect]
     Route: 048
     Dates: start: 20100218
  8. IMOVANE [Concomitant]
     Route: 048
  9. TRANSIPEG [Concomitant]
     Route: 048
  10. DAKTARIN [Concomitant]
     Route: 048

REACTIONS (2)
  - FALL [None]
  - INCORRECT ROUTE OF DRUG ADMINISTRATION [None]
